FAERS Safety Report 5826991-X (Version None)
Quarter: 2008Q3

REPORT INFORMATION
  Report Type: 
  Country: None (occurrence: None)
  Receive Date: 20080725
  Receipt Date: 20080715
  Transmission Date: 20090109
  Serious: Yes (Other)
  Sender: FDA-Public Use
  Company Number: CIP08001356

PATIENT
  Age: 68 Year
  Sex: Female

DRUGS (1)
  1. ACTONEL [Suspect]
     Indication: OSTEOPOROSIS
     Dosage: 2.5 MG DAILY, ORAL
     Route: 048
     Dates: start: 20060801

REACTIONS (6)
  - GINGIVAL ERYTHEMA [None]
  - GINGIVAL SWELLING [None]
  - GINGIVAL ULCERATION [None]
  - PERIODONTAL DISEASE [None]
  - TOOTH FRACTURE [None]
  - TOOTHACHE [None]
